FAERS Safety Report 9467439 (Version 1)
Quarter: 2013Q3

REPORT INFORMATION
  Report Type: Report from Study
  Country: MX (occurrence: MX)
  Receive Date: 20130821
  Receipt Date: 20130821
  Transmission Date: 20140515
  Serious: Yes (Other)
  Sender: FDA-Public Use
  Company Number: PHHY2013MX089300

PATIENT
  Age: 80 Year
  Sex: Female

DRUGS (1)
  1. DIOVAN [Suspect]
     Indication: CARDIAC DISORDER
     Dosage: 160 MG, DAILY
     Route: 048
     Dates: start: 201005

REACTIONS (5)
  - Fall [Not Recovered/Not Resolved]
  - Arthropathy [Not Recovered/Not Resolved]
  - Cardiomegaly [Not Recovered/Not Resolved]
  - Arrhythmia [Recovered/Resolved]
  - Blood pressure abnormal [Not Recovered/Not Resolved]
